FAERS Safety Report 23624192 (Version 1)
Quarter: 2024Q1

REPORT INFORMATION
  Report Type: Spontaneous
  Country: FR (occurrence: FR)
  Receive Date: 20240312
  Receipt Date: 20240312
  Transmission Date: 20240410
  Serious: Yes (Hospitalization)
  Sender: FDA-Public Use
  Company Number: FR-Rhythm Pharmaceuticals, Inc.-2024RHM000119

PATIENT
  Age: 49 Year
  Sex: Male
  Weight: 117 kg

DRUGS (6)
  1. IMCIVREE [Suspect]
     Active Substance: SETMELANOTIDE
     Indication: Obesity
     Route: 058
     Dates: start: 20240222, end: 20240225
  2. IMCIVREE [Suspect]
     Active Substance: SETMELANOTIDE
     Route: 058
     Dates: start: 20240225, end: 20240226
  3. HYDROCORTISONE [Concomitant]
     Active Substance: HYDROCORTISONE
     Indication: Adrenocorticotropic hormone deficiency
     Route: 065
  4. LEVOTHYROXINE [Concomitant]
     Active Substance: LEVOTHYROXINE\LEVOTHYROXINE SODIUM
     Indication: Thyroid stimulating hormone deficiency
     Route: 065
  5. MINIRIN [Concomitant]
     Active Substance: DESMOPRESSIN ACETATE
     Indication: Diabetes insipidus
     Route: 065
  6. Antrodartyl [Concomitant]
     Indication: Blood follicle stimulating hormone decreased
     Route: 065

REACTIONS (5)
  - Hyponatraemia [Unknown]
  - Decreased appetite [Unknown]
  - Myalgia [Recovered/Resolved]
  - Nausea [Recovered/Resolved]
  - Headache [Recovered/Resolved]

NARRATIVE: CASE EVENT DATE: 20240223
